FAERS Safety Report 4555903-4 (Version None)
Quarter: 2005Q1

REPORT INFORMATION
  Report Type: 
  Country: None (occurrence: None)
  Receive Date: 20050119
  Receipt Date: 20050107
  Transmission Date: 20050727
  Serious: Yes (Other)
  Sender: FDA-Public Use
  Company Number: FR-MERCK-0501USA00884

PATIENT
  Age: 60 Year
  Sex: Male

DRUGS (6)
  1. ZOCOR [Suspect]
     Route: 048
     Dates: start: 20040101, end: 20050103
  2. KARDEGIC [Concomitant]
     Route: 065
  3. PLAVIX [Concomitant]
     Route: 065
  4. TRIATEC [Concomitant]
     Route: 065
  5. ZINNAT [Concomitant]
     Route: 065
  6. OMEPRAZOLE [Concomitant]
     Route: 065

REACTIONS (5)
  - ASTHENIA [None]
  - BLOOD CREATINE PHOSPHOKINASE INCREASED [None]
  - MYALGIA [None]
  - TRANSAMINASES INCREASED [None]
  - TRISMUS [None]
